FAERS Safety Report 5455539-7 (Version None)
Quarter: 2007Q3

REPORT INFORMATION
  Report Type: 
  Country: None (occurrence: None)
  Receive Date: 20070918
  Receipt Date: 20070425
  Transmission Date: 20080115
  Serious: Yes (Disabling)
  Sender: FDA-Public Use
  Company Number: US-ASTRAZENECA-2006UW21796

PATIENT
  Sex: Female
  Weight: 159.1 kg

DRUGS (9)
  1. SEROQUEL [Suspect]
     Indication: SCHIZOPHRENIA
     Route: 048
  2. ABILIFY [Concomitant]
  3. GEODON [Concomitant]
  4. HALDOL [Concomitant]
  5. RISPERDAL [Concomitant]
  6. WELLBUTRIN [Concomitant]
  7. NEUROTEN [Concomitant]
  8. VALIUM [Concomitant]
  9. TRIZADONE [Concomitant]

REACTIONS (1)
  - DIABETES MELLITUS [None]
